FAERS Safety Report 8550325-3 (Version None)
Quarter: 2012Q3

REPORT INFORMATION
  Report Type: 
  Country: None (occurrence: None)
  Receive Date: 20120730
  Receipt Date: 20110602
  Transmission Date: 20120928
  Serious: No
  Sender: FDA-Public Use
  Company Number: US-ALLERGAN-1107568US

PATIENT
  Age: 65 Year
  Sex: Male

DRUGS (2)
  1. LUMIGAN [Suspect]
     Indication: OPEN ANGLE GLAUCOMA
     Dosage: 2 GTT, SINGLE
     Route: 047
     Dates: start: 20110531, end: 20110531
  2. ARTIFICIAL TEARS [Concomitant]
     Indication: DRY EYE
     Dosage: UNK

REACTIONS (3)
  - EYE PAIN [None]
  - OCULAR HYPERAEMIA [None]
  - OCULAR VASCULAR DISORDER [None]
